FAERS Safety Report 7948580-3 (Version None)
Quarter: 2011Q4

REPORT INFORMATION
  Report Type: 
  Country: None (occurrence: None)
  Receive Date: 20111128
  Receipt Date: 20111128
  Transmission Date: 20120403
  Serious: Yes (Other)
  Sender: FDA-Public Use
  Company Number: None

PATIENT
  Sex: Female

DRUGS (1)
  1. ZELBORAF 240MG [Suspect]
     Dosage: 980 MG BID PO
     Route: 048
     Dates: start: 19111103, end: 20111110

REACTIONS (3)
  - RASH [None]
  - PYREXIA [None]
  - SWELLING [None]
